FAERS Safety Report 16006663 (Version 2)
Quarter: 2019Q1

REPORT INFORMATION
  Report Type: Spontaneous
  Country: DK (occurrence: DK)
  Receive Date: 20190225
  Receipt Date: 20190227
  Transmission Date: 20190418
  Serious: Yes (Life-Threatening, Hospitalization)
  Sender: FDA-Public Use
  Company Number: DK-EISAI MEDICAL RESEARCH-EC-2019-052517

PATIENT
  Age: 66 Year
  Sex: Female

DRUGS (3)
  1. DONEPEZIL. [Suspect]
     Active Substance: DONEPEZIL
     Route: 048
     Dates: start: 2018, end: 20181129
  2. DONEPEZIL. [Suspect]
     Active Substance: DONEPEZIL
     Route: 048
     Dates: start: 2018, end: 2018
  3. DONEPEZIL. [Suspect]
     Active Substance: DONEPEZIL
     Indication: DEMENTIA ALZHEIMER^S TYPE
     Route: 048
     Dates: start: 20180906, end: 2018

REACTIONS (2)
  - Atrioventricular block [Recovered/Resolved]
  - Syncope [Recovered/Resolved]

NARRATIVE: CASE EVENT DATE: 20181124
